FAERS Safety Report 14609855 (Version 3)
Quarter: 2018Q2

REPORT INFORMATION
  Report Type: Spontaneous
  Country: GB (occurrence: GB)
  Receive Date: 20180307
  Receipt Date: 20180531
  Transmission Date: 20180711
  Serious: Yes (Other)
  Sender: FDA-Public Use
  Company Number: PHHY2018GB031425

PATIENT
  Sex: Female
  Weight: 2.1 kg

DRUGS (15)
  1. METFORMIN [Suspect]
     Active Substance: METFORMIN HYDROCHLORIDE
     Indication: GESTATIONAL DIABETES
  2. DEXTROSE. [Suspect]
     Active Substance: DEXTROSE
     Indication: HYPOGLYCAEMIA
  3. VITAMINS NOS [Concomitant]
     Active Substance: VITAMINS
     Indication: FOETAL EXPOSURE DURING PREGNANCY
     Dosage: UNK
     Route: 064
  4. METFORMIN [Suspect]
     Active Substance: METFORMIN HYDROCHLORIDE
     Indication: FOETAL EXPOSURE DURING PREGNANCY
     Dosage: UNK
     Route: 064
  5. HUMALOG [Suspect]
     Active Substance: INSULIN LISPRO
     Indication: FOETAL EXPOSURE DURING PREGNANCY
  6. URSODEOXYCHOLIC ACID [Suspect]
     Active Substance: URSODIOL
     Indication: FOETAL EXPOSURE DURING PREGNANCY
     Dosage: UNK
     Route: 064
  7. HUMALOG [Suspect]
     Active Substance: INSULIN LISPRO
     Dosage: UNK
     Route: 064
  8. CALCIUM PLUS (MINERALS\VITAMINS) [Suspect]
     Active Substance: MINERALS\VITAMINS
     Indication: FOETAL EXPOSURE DURING PREGNANCY
     Route: 064
  9. DEXTROSE. [Suspect]
     Active Substance: DEXTROSE
     Dosage: UNK
     Route: 064
  10. CHOLECALCIFEROL [Suspect]
     Active Substance: CHOLECALCIFEROL
     Indication: FOETAL EXPOSURE DURING PREGNANCY
     Dosage: MATERNAL DOSE: 800 LU TABLET PER DAY
     Route: 064
  11. DEXTROSE. [Suspect]
     Active Substance: DEXTROSE
     Indication: FOETAL EXPOSURE DURING PREGNANCY
  12. HUMULIN L [Suspect]
     Active Substance: INSULIN HUMAN
     Dosage: UNK
     Route: 064
  13. HUMULIN L [Suspect]
     Active Substance: INSULIN HUMAN
     Indication: FOETAL EXPOSURE DURING PREGNANCY
  14. HUMULIN L [Suspect]
     Active Substance: INSULIN HUMAN
     Indication: GESTATIONAL DIABETES
  15. HUMALOG [Suspect]
     Active Substance: INSULIN LISPRO
     Indication: GESTATIONAL DIABETES

REACTIONS (7)
  - Foetal exposure during pregnancy [Unknown]
  - Caesarean section [None]
  - Small for dates baby [Unknown]
  - Live birth [Unknown]
  - Premature baby [Unknown]
  - Maternal drugs affecting foetus [None]
  - Low birth weight baby [Unknown]
